FAERS Safety Report 15372207 (Version 1)
Quarter: 2018Q3

REPORT INFORMATION
  Report Type: Report from Study
  Country: US (occurrence: US)
  Receive Date: 20180911
  Receipt Date: 20180911
  Transmission Date: 20181010
  Serious: Yes (Hospitalization)
  Sender: FDA-Public Use
  Company Number: US-ACTELION-A-NJ2018-178404

PATIENT
  Age: 40 Year
  Sex: Female

DRUGS (8)
  1. DEXILANT [Concomitant]
     Active Substance: DEXLANSOPRAZOLE
  2. IRON [Concomitant]
     Active Substance: IRON
  3. ELIQUIS [Concomitant]
     Active Substance: APIXABAN
  4. MULTIVITAMIN [Concomitant]
     Active Substance: VITAMINS
  5. SILDENAFIL. [Concomitant]
     Active Substance: SILDENAFIL
  6. FUROSEMIDE. [Concomitant]
     Active Substance: FUROSEMIDE
  7. OPSUMIT [Suspect]
     Active Substance: MACITENTAN
     Indication: PULMONARY ARTERIAL HYPERTENSION
     Dosage: 10 MG, QD
     Route: 048
     Dates: start: 20180629
  8. PREDNISONE. [Concomitant]
     Active Substance: PREDNISONE

REACTIONS (4)
  - Chest pain [Unknown]
  - Blood count abnormal [Unknown]
  - Inflammation [Unknown]
  - Anaemia [Unknown]

NARRATIVE: CASE EVENT DATE: 201808
